FAERS Safety Report 17283304 (Version 2)
Quarter: 2020Q1

REPORT INFORMATION
  Report Type: Report from Study
  Country: None (occurrence: US)
  Receive Date: 20200117
  Receipt Date: 20200207
  Transmission Date: 20200409
  Serious: Yes (Hospitalization)
  Sender: FDA-Public Use
  Company Number: US-INSMED, INC.-US-INS-19-03910

PATIENT
  Sex: Female

DRUGS (2)
  1. ARIKAYCE [Suspect]
     Active Substance: AMIKACIN
     Indication: PRODUCT USED FOR UNKNOWN INDICATION
     Route: 055
     Dates: start: 20191209
  2. LAMIRA NEBULIZER SYSTEM [Suspect]
     Active Substance: DEVICE

REACTIONS (8)
  - Dyspnoea [Unknown]
  - Wheezing [Unknown]
  - Oxygen saturation decreased [Unknown]
  - Hospitalisation [Unknown]
  - Dysphonia [Unknown]
  - Pyrexia [Unknown]
  - Dysgeusia [Recovered/Resolved]
  - Aphonia [Unknown]

NARRATIVE: CASE EVENT DATE: 2019
